FAERS Safety Report 7770945-3 (Version None)
Quarter: 2011Q3

REPORT INFORMATION
  Report Type: 
  Country: None (occurrence: None)
  Receive Date: 20110922
  Receipt Date: 20101213
  Transmission Date: 20111222
  Serious: No
  Sender: FDA-Public Use
  Company Number: US-ASTRAZENECA-2010SE58830

PATIENT
  Sex: Male

DRUGS (4)
  1. SEROQUEL XR [Suspect]
     Route: 048
  2. IMDUR [Concomitant]
  3. XANAX [Concomitant]
     Dosage: 2 MG, 3 TIMES DAILY, AS NEEDED.
  4. VYTORIN [Concomitant]
     Dosage: 10/40 ONCE AT BED TIME

REACTIONS (2)
  - NERVOUSNESS [None]
  - DRUG DOSE OMISSION [None]
